FAERS Safety Report 15357855 (Version 8)
Quarter: 2021Q1

REPORT INFORMATION
  Report Type: Report from Study
  Country: JP (occurrence: JP)
  Receive Date: 20180906
  Receipt Date: 20210203
  Transmission Date: 20210419
  Serious: Yes (Other)
  Sender: FDA-Public Use
  Company Number: JP-JNJFOC-20180900516

PATIENT
  Age: 54 Year
  Sex: Female
  Weight: 61.3 kg

DRUGS (42)
  1. SIMPONI [Suspect]
     Active Substance: GOLIMUMAB
     Route: 058
     Dates: start: 20180905, end: 20180905
  2. SIMPONI [Suspect]
     Active Substance: GOLIMUMAB
     Route: 058
     Dates: start: 20181128, end: 20181128
  3. SIMPONI [Suspect]
     Active Substance: GOLIMUMAB
     Route: 058
     Dates: start: 20181226, end: 20181226
  4. PREDNISOLONE. [Suspect]
     Active Substance: PREDNISOLONE
     Route: 048
     Dates: start: 20180404, end: 20180529
  5. PREDNISOLONE. [Suspect]
     Active Substance: PREDNISOLONE
     Route: 048
     Dates: start: 20181226, end: 20190423
  6. IRRIBOW [Concomitant]
     Active Substance: RAMOSETRON HYDROCHLORIDE
     Route: 048
  7. LAC?B [Concomitant]
     Active Substance: BIFIDOBACTERIUM SPP.
     Route: 048
  8. SIMPONI [Suspect]
     Active Substance: GOLIMUMAB
     Route: 058
     Dates: start: 20181003, end: 20181003
  9. PREDNISOLONE. [Suspect]
     Active Substance: PREDNISOLONE
     Route: 048
     Dates: start: 20181003, end: 20181030
  10. PREDNISOLONE. [Suspect]
     Active Substance: PREDNISOLONE
     Route: 048
     Dates: start: 20181128, end: 20181225
  11. LEUKERIN [Suspect]
     Active Substance: MERCAPTOPURINE
     Route: 048
     Dates: start: 20190424, end: 20190521
  12. PROGRAF [Concomitant]
     Active Substance: TACROLIMUS
     Indication: COLITIS ULCERATIVE
     Route: 048
     Dates: end: 20180403
  13. CALONAL [Concomitant]
     Active Substance: ACETAMINOPHEN
     Route: 065
  14. SIMPONI [Suspect]
     Active Substance: GOLIMUMAB
     Route: 058
     Dates: start: 20180711, end: 20180711
  15. SIMPONI [Suspect]
     Active Substance: GOLIMUMAB
     Route: 058
     Dates: start: 20190123, end: 20190123
  16. PREDNISOLONE. [Suspect]
     Active Substance: PREDNISOLONE
     Route: 048
     Dates: start: 20180530, end: 20180605
  17. PREDNISOLONE. [Suspect]
     Active Substance: PREDNISOLONE
     Route: 048
     Dates: start: 20180628, end: 20180704
  18. PREDNISOLONE. [Suspect]
     Active Substance: PREDNISOLONE
     Route: 048
     Dates: start: 20190612, end: 20190618
  19. CELECOXIB. [Concomitant]
     Active Substance: CELECOXIB
     Route: 048
  20. AMLODIPINE BESILATE [Concomitant]
     Active Substance: AMLODIPINE BESYLATE
     Route: 048
  21. SIMPONI [Suspect]
     Active Substance: GOLIMUMAB
     Indication: COLITIS ULCERATIVE
     Route: 058
     Dates: start: 20180620, end: 20180620
  22. SIMPONI [Suspect]
     Active Substance: GOLIMUMAB
     Route: 058
     Dates: start: 20180808, end: 20180808
  23. SIMPONI [Suspect]
     Active Substance: GOLIMUMAB
     Route: 058
     Dates: start: 20190320, end: 20190320
  24. LIALDA [Concomitant]
     Active Substance: MESALAMINE
     Indication: COLITIS ULCERATIVE
     Route: 048
  25. COLONEL [Concomitant]
     Active Substance: CALCIUM POLYCARBOPHIL
     Route: 048
  26. SIMPONI [Suspect]
     Active Substance: GOLIMUMAB
     Route: 058
     Dates: start: 20190522, end: 20190522
  27. PREDNISOLONE. [Suspect]
     Active Substance: PREDNISOLONE
     Route: 048
     Dates: start: 20180719, end: 20180904
  28. PREDNISOLONE. [Suspect]
     Active Substance: PREDNISOLONE
     Route: 048
     Dates: start: 20190424, end: 20190611
  29. LEUKERIN [Suspect]
     Active Substance: MERCAPTOPURINE
     Indication: COLITIS ULCERATIVE
     Route: 048
     Dates: end: 20190423
  30. PROGRAF [Concomitant]
     Active Substance: TACROLIMUS
     Route: 048
     Dates: start: 20180404
  31. SIMPONI [Suspect]
     Active Substance: GOLIMUMAB
     Route: 058
     Dates: start: 20190220, end: 20190220
  32. PREDNISOLONE. [Suspect]
     Active Substance: PREDNISOLONE
     Indication: COLITIS ULCERATIVE
     Route: 048
     Dates: end: 20180403
  33. PREDNISOLONE. [Suspect]
     Active Substance: PREDNISOLONE
     Route: 048
     Dates: start: 20180606, end: 20180620
  34. PREDNISOLONE. [Suspect]
     Active Substance: PREDNISOLONE
     Route: 048
     Dates: start: 20180705, end: 20180718
  35. PREDNISOLONE. [Suspect]
     Active Substance: PREDNISOLONE
     Route: 048
     Dates: start: 20180905, end: 20181002
  36. PREDNISOLONE. [Suspect]
     Active Substance: PREDNISOLONE
     Route: 048
     Dates: start: 20190619, end: 20190625
  37. SAWACILLIN [Concomitant]
     Active Substance: AMOXICILLIN
     Indication: LISTERIA SEPSIS
     Route: 048
     Dates: start: 20180711, end: 20180717
  38. CEFTRIAXONE SODIUM. [Concomitant]
     Active Substance: CEFTRIAXONE SODIUM
     Indication: LISTERIA SEPSIS
     Route: 065
     Dates: start: 20180711, end: 20180712
  39. SIMPONI [Suspect]
     Active Substance: GOLIMUMAB
     Route: 058
     Dates: start: 20181031, end: 20181031
  40. SIMPONI [Suspect]
     Active Substance: GOLIMUMAB
     Route: 058
     Dates: start: 20190424, end: 20190424
  41. PREDNISOLONE. [Suspect]
     Active Substance: PREDNISOLONE
     Route: 048
     Dates: start: 20180621, end: 20180627
  42. PREDNISOLONE. [Suspect]
     Active Substance: PREDNISOLONE
     Route: 048
     Dates: start: 20181031, end: 20181127

REACTIONS (2)
  - Listeria sepsis [Recovered/Resolved]
  - Cystitis [Recovered/Resolved]

NARRATIVE: CASE EVENT DATE: 20180709
